FAERS Safety Report 10020705 (Version 2)
Quarter: 2014Q1

REPORT INFORMATION
  Report Type: Spontaneous
  Country: CA (occurrence: None)
  Receive Date: 20131127
  Receipt Date: 20140321
  Transmission Date: 20141002
  Serious: Yes (Death, Hospitalization)
  Sender: FDA-Public Use
  Company Number: CA-009850

PATIENT
  Age: 75 Year
  Sex: Male

DRUGS (7)
  1. FIRMAGON /01764801/ (FIRMAGON) 80 MG (NOT SPECIFIED) [Suspect]
     Indication: PROSTATE CANCER
     Dosage: 1X/MONTH SUBUTANEOUS)
     Route: 058
     Dates: start: 20120119
  2. BAYER CITRACAL VITAMIN D [Concomitant]
  3. CALCIUM [Concomitant]
  4. TYLENOL /00020001/ (TO UNKNOWN) [Concomitant]
  5. PREDNISONE [Concomitant]
  6. XGEVA [Concomitant]
  7. ADVIL /00109201/ [Concomitant]

REACTIONS (8)
  - Injection site pain [None]
  - Muscular weakness [None]
  - Musculoskeletal pain [None]
  - Malignant neoplasm progression [None]
  - Injection site inflammation [None]
  - Metastases to bone [None]
  - Prostate cancer [None]
  - Muscular weakness [None]
